FAERS Safety Report 8571001-7 (Version None)
Quarter: 2012Q3

REPORT INFORMATION
  Report Type: 
  Country: None (occurrence: None)
  Receive Date: 20120806
  Receipt Date: 20120731
  Transmission Date: 20120928
  Serious: No
  Sender: FDA-Public Use
  Company Number: US-009507513-1208USA000420

PATIENT

DRUGS (4)
  1. NEUPOGEN [Concomitant]
  2. RIBASPHERE [Suspect]
  3. PROCRIT [Concomitant]
  4. PEG-INTRON [Suspect]
     Indication: HEPATITIS C
     Dosage: 0.5 ML, QW
     Route: 058

REACTIONS (3)
  - UNDERDOSE [None]
  - FATIGUE [None]
  - DEVICE MALFUNCTION [None]
